FAERS Safety Report 14317565 (Version 1)
Quarter: 2017Q4

REPORT INFORMATION
  Report Type: Report from Study
  Country: CA (occurrence: CA)
  Receive Date: 20171222
  Receipt Date: 20171222
  Transmission Date: 20180321
  Serious: Yes (Other)
  Sender: FDA-Public Use
  Company Number: PHHY2017CA186410

PATIENT
  Sex: Female

DRUGS (1)
  1. GLEEVEC [Suspect]
     Active Substance: IMATINIB MESYLATE
     Indication: CHRONIC MYELOID LEUKAEMIA
     Dosage: 400 MG, QD
     Route: 048
     Dates: start: 20130712

REACTIONS (6)
  - Drug intolerance [Unknown]
  - Cardiac disorder [Unknown]
  - Vomiting [Unknown]
  - Dyspepsia [Unknown]
  - Feeling abnormal [Unknown]
  - Weight increased [Unknown]
